FAERS Safety Report 17334357 (Version 2)
Quarter: 2020Q1

REPORT INFORMATION
  Report Type: Report from Study
  Country: US (occurrence: US)
  Receive Date: 20200128
  Receipt Date: 20200225
  Transmission Date: 20200409
  Serious: Yes (Hospitalization)
  Sender: FDA-Public Use
  Company Number: US-ROCHE-2528745

PATIENT
  Age: 67 Year
  Sex: Male
  Weight: 95.34 kg

DRUGS (11)
  1. ATORVASTATIN [Concomitant]
     Active Substance: ATORVASTATIN
     Indication: BLOOD CHOLESTEROL INCREASED
     Route: 065
     Dates: start: 2018
  2. BACLOPHEN [Concomitant]
     Indication: MUSCLE SPASMS
  3. LISINOPRIL. [Concomitant]
     Active Substance: LISINOPRIL
     Indication: HYPERTENSION
     Route: 065
     Dates: start: 2017
  4. VITAMIN D3 [Concomitant]
     Active Substance: CHOLECALCIFEROL
     Route: 065
  5. OCREVUS [Suspect]
     Active Substance: OCRELIZUMAB
     Dosage: ON 31/JUL/2018, 24/SEP/2019, HE RECEIVED MOST RECENT DOSE OF OCRELIZUMAB.
     Route: 042
  6. AMINOPYRIDINE [Concomitant]
     Active Substance: DALFAMPRIDINE
     Route: 065
     Dates: start: 2019
  7. BACLOPHEN [Concomitant]
     Indication: TREMOR
     Route: 065
     Dates: start: 2017
  8. AMPYRA [Concomitant]
     Active Substance: DALFAMPRIDINE
     Route: 065
     Dates: start: 2017
  9. CILOSTAZOL. [Concomitant]
     Active Substance: CILOSTAZOL
     Route: 065
     Dates: start: 2018
  10. ASPIRIN [ACETYLSALICYLIC ACID] [Concomitant]
     Active Substance: ASPIRIN
     Route: 065
     Dates: start: 2015
  11. OCREVUS [Suspect]
     Active Substance: OCRELIZUMAB
     Indication: PRIMARY PROGRESSIVE MULTIPLE SCLEROSIS
     Route: 042
     Dates: start: 2018

REACTIONS (7)
  - Blood cholesterol increased [Not Recovered/Not Resolved]
  - Fall [Unknown]
  - Energy increased [Unknown]
  - Asthenia [Recovered/Resolved]
  - Influenza [Unknown]
  - Magnetic resonance imaging abnormal [Unknown]
  - Contusion [Unknown]

NARRATIVE: CASE EVENT DATE: 2020
